FAERS Safety Report 13598990 (Version 1)
Quarter: 2017Q2

REPORT INFORMATION
  Report Type: Spontaneous
  Country: US (occurrence: US)
  Receive Date: 20170531
  Receipt Date: 20170531
  Transmission Date: 20170830
  Serious: Yes (Other)
  Sender: FDA-Public Use
  Company Number: US-RISING PHARMACEUTICALS, INC.-2017RIS00110

PATIENT
  Sex: Male
  Weight: 92.97 kg

DRUGS (7)
  1. CLOTRIMAZOLE AND BETAMETHASONE DIPROPIONATE (FOUGERA) [Concomitant]
  2. PROCTOZONE-HC [Suspect]
     Active Substance: HYDROCORTISONE
     Indication: ANAL INFLAMMATION
     Dosage: UNK UNK, 3X/DAY
     Route: 061
  3. PROCTOZONE-HC [Suspect]
     Active Substance: HYDROCORTISONE
     Indication: FUNGAL INFECTION
  4. FINASTERIDE. [Concomitant]
     Active Substance: FINASTERIDE
     Dosage: 5 MG, 1X/DAY
  5. SEPTRA [Suspect]
     Active Substance: SULFAMETHOXAZOLE\TRIMETHOPRIM
  6. SAPPRA [Suspect]
     Active Substance: UNSPECIFIED INGREDIENT
  7. CAMPHOR 0.54%/MENTHOL CREAM [Concomitant]
     Dosage: UNK
     Dates: start: 201702

REACTIONS (7)
  - Secretion discharge [Not Recovered/Not Resolved]
  - Pruritus [Recovered/Resolved]
  - Prostate infection [Not Recovered/Not Resolved]
  - Drug effect decreased [Not Recovered/Not Resolved]
  - Rash erythematous [Recovered/Resolved]
  - Rash [Not Recovered/Not Resolved]
  - Drug hypersensitivity [Recovered/Resolved]
